FAERS Safety Report 5082678-5 (Version None)
Quarter: 2006Q3

REPORT INFORMATION
  Report Type: 
  Country: None (occurrence: None)
  Receive Date: 20060816
  Receipt Date: 20060816
  Transmission Date: 20061208
  Serious: Yes (Hospitalization)
  Sender: FDA-Public Use
  Company Number: None

PATIENT
  Sex: Male
  Weight: 81.5 kg

DRUGS (5)
  1. CYCLOPHOSPHAMIDE [Suspect]
     Dosage: 2400 MG
     Dates: end: 20060728
  2. DAUNORUBICIN HCL [Suspect]
     Dosage: 480 MG
     Dates: end: 20060730
  3. DEXAMETHASONE [Suspect]
     Dosage: 160 MG
     Dates: end: 20060811
  4. L-ASPARAGINASE [Suspect]
     Dosage: 48000 UNIT
     Dates: end: 20060811
  5. VINCRISTINE SULFATE [Suspect]
     Dosage: 6 MG
     Dates: end: 20060811

REACTIONS (4)
  - FEBRILE NEUTROPENIA [None]
  - HAEMOGLOBIN DECREASED [None]
  - PLATELET COUNT ABNORMAL [None]
  - WHITE BLOOD CELL COUNT DECREASED [None]
